FAERS Safety Report 5884033-4 (Version None)
Quarter: 2008Q3

REPORT INFORMATION
  Report Type: 
  Country: None (occurrence: None)
  Receive Date: 20080911
  Receipt Date: 20080831
  Transmission Date: 20090109
  Serious: Yes (Hospitalization, Other)
  Sender: FDA-Public Use
  Company Number: 100#02#2008-04517

PATIENT
  Age: 69 Year
  Sex: Male

DRUGS (19)
  1. VENTOLIN [Suspect]
     Indication: ASTHMA
     Dosage: RESPIRATORY (INHALATION)
     Route: 055
  2. AMLODIPINE [Suspect]
     Indication: DRUG USE FOR UNKNOWN INDICATION
     Dosage: 5 MG
  3. ACETYLSALICYLIC ACID SRT [Suspect]
     Indication: DRUG USE FOR UNKNOWN INDICATION
     Dosage: 75 MG
  4. OMEPRAZOLE [Suspect]
     Indication: DRUG USE FOR UNKNOWN INDICATION
     Dosage: 40 MG
  5. RAMIPRIL [Suspect]
     Indication: DRUG USE FOR UNKNOWN INDICATION
     Dosage: 2.5 MG
  6. SIMVASTATIN [Suspect]
     Indication: DRUG USE FOR UNKNOWN INDICATION
     Dosage: 20 MG
  7. WARFARIN SODIUM [Suspect]
     Indication: DRUG USE FOR UNKNOWN INDICATION
     Dosage: 2.5 MG
  8. SERETIDE (FLUTICASONE, SALMETEROL) [Concomitant]
     Indication: ASTHMA
     Dosage: RESPIRATORY (INHALATION)
     Route: 055
  9. ACETAMINOPHEN W/ CODEINE [Suspect]
     Indication: DRUG USE FOR UNKNOWN INDICATION
  10. COD LIVER OIL FORTIFIED TAB [Suspect]
     Indication: DRUG USE FOR UNKNOWN INDICATION
     Dosage: TWO CAPSULES
  11. FUROSEMIDE [Suspect]
     Indication: DRUG USE FOR UNKNOWN INDICATION
     Dosage: 80 MG
  12. GLUCOSAMINE SULPHATE (GLUCOSAMINE) [Suspect]
     Indication: DRUG USE FOR UNKNOWN INDICATION
  13. GLYCOSIDE (GLYCOSIDE) [Suspect]
     Indication: DRUG USE FOR UNKNOWN INDICATION
     Dosage: 80 MG
  14. NITROGLYCERINE (NITROGLYCERINE) [Suspect]
     Indication: DRUG USE FOR UNKNOWN INDICATION
  15. ACETAMINOPHEN [Suspect]
     Indication: DRUG USE FOR UNKNOWN INDICATION
  16. PETHIDINE HYDROCHLORIDE (PETHIDINE) [Suspect]
     Indication: DRUG USE FOR UNKNOWN INDICATION
  17. QUININE SULPHATE (QUININE) [Suspect]
     Indication: DRUG USE FOR UNKNOWN INDICATION
  18. PANCREATIN (LIPASE, PROTEASE, AMYLASE) [Concomitant]
     Indication: DRUG USE FOR UNKNOWN INDICATION
  19. CREON [Suspect]
     Indication: DRUG USE FOR UNKNOWN INDICATION
     Dosage: 25 000 X 2 WITH EACH MEAL

REACTIONS (2)
  - ENTEROCOLITIS [None]
  - PNEUMONIA PNEUMOCOCCAL [None]
